FAERS Safety Report 8999641 (Version 5)
Quarter: 2013Q4

REPORT INFORMATION
  Report Type: Report from Study
  Country: JP (occurrence: JP)
  Receive Date: 20130103
  Receipt Date: 20131202
  Transmission Date: 20140711
  Serious: Yes (Hospitalization)
  Sender: FDA-Public Use
  Company Number: JP-VERTEX PHARMACEUTICALS INC.-2012-026733

PATIENT
  Age: 68 Year
  Sex: Female

DRUGS (13)
  1. VX-950 (TELAPREVIR) [Suspect]
     Indication: CHRONIC HEPATITIS C
     Dosage: 1500 MG, QD
     Route: 048
     Dates: start: 20120912, end: 20121101
  2. RIBAVIRIN [Suspect]
     Indication: CHRONIC HEPATITIS C
     Dosage: 400 MG, QD
     Route: 048
     Dates: start: 20120912, end: 20120913
  3. RIBAVIRIN [Suspect]
     Dosage: 200 MG, QD
     Route: 048
     Dates: start: 20120914, end: 20120917
  4. RIBAVIRIN [Suspect]
     Dosage: 400 MG, QD
     Route: 048
     Dates: start: 20120918, end: 20120924
  5. RIBAVIRIN [Suspect]
     Dosage: 200 MG AND 400 MG ON ALTERNATE DAYS (200MG/DAY ON 25SEP, 400MG/DAY ON 26SEP, 200MG/DAY ON 27SEP)
     Route: 048
     Dates: start: 20120925, end: 20120927
  6. RIBAVIRIN [Suspect]
     Dosage: 200 MG, QD
     Route: 048
     Dates: start: 20120928, end: 20121107
  7. PEGINTERFERON ALFA-2B [Suspect]
     Indication: CHRONIC HEPATITIS C
     Dosage: 1.5 ?G/KG, QW
     Route: 058
     Dates: start: 20120912, end: 20121101
  8. THYRADIN-S [Concomitant]
     Dosage: 75 ?G, QD
     Route: 048
  9. GASTER D [Concomitant]
     Dosage: 20 MG, QD
     Route: 048
  10. AMLODIPINE [Concomitant]
     Dosage: 5 MG, QD
     Route: 048
  11. MYTEAR [Concomitant]
     Dosage: Q.S., QD
     Route: 047
     Dates: end: 20130128
  12. SANCOBA [Concomitant]
     Dosage: Q.S., QD
     Route: 047
     Dates: start: 20130129
  13. ONEALFA [Concomitant]
     Dosage: 0.25 ?G, QD
     Route: 048
     Dates: start: 20121107, end: 20121121

REACTIONS (1)
  - Drug eruption [Recovered/Resolved]
